FAERS Safety Report 9952316 (Version 1)
Quarter: 2014Q1

REPORT INFORMATION
  Report Type: Report from Study
  Country: US (occurrence: US)
  Receive Date: 20140304
  Receipt Date: 20140304
  Transmission Date: 20141002
  Serious: No
  Sender: FDA-Public Use
  Company Number: US-ABBVIE-13P-163-1072767-00

PATIENT
  Age: 50 Year
  Sex: Female

DRUGS (8)
  1. HUMIRA [Suspect]
     Indication: PSORIASIS
     Dates: start: 20130223
  2. DORYX [Concomitant]
     Indication: PSORIASIS
     Dosage: DAILY
  3. UNKNOWN PILL [Concomitant]
     Indication: OSTEOARTHRITIS
     Dosage: DAILY
  4. CALCIUM [Concomitant]
     Indication: PRODUCT USED FOR UNKNOWN INDICATION
     Dosage: DAILY
  5. VITAMIN B 12 [Concomitant]
     Indication: VITAMIN B12 DECREASED
     Dosage: MONTHLY
     Route: 050
  6. ALLEGRA D [Concomitant]
     Indication: HYPERSENSITIVITY
  7. NASONEX [Concomitant]
     Indication: HYPERSENSITIVITY
  8. UNKNOWN INHALER [Concomitant]
     Indication: HYPERSENSITIVITY

REACTIONS (3)
  - Respiratory disorder [Not Recovered/Not Resolved]
  - Hypersensitivity [Not Recovered/Not Resolved]
  - Asthma [Not Recovered/Not Resolved]
